FAERS Safety Report 8217783-5 (Version None)
Quarter: 2012Q1

REPORT INFORMATION
  Report Type: 
  Country: None (occurrence: None)
  Receive Date: 20120319
  Receipt Date: 20120308
  Transmission Date: 20120608
  Serious: Yes (Death, Other)
  Sender: FDA-Public Use
  Company Number: GB-JNJFOC-20110208716

PATIENT
  Sex: Female
  Weight: 66 kg

DRUGS (2)
  1. INFLIXIMAB, RECOMBINANT [Suspect]
     Indication: RHEUMATOID ARTHRITIS
     Route: 042
     Dates: start: 20021021, end: 20021115
  2. AZATHIOPRINE [Concomitant]
     Dates: start: 20021215

REACTIONS (1)
  - COLON NEOPLASM [None]
